FAERS Safety Report 7672946-2 (Version None)
Quarter: 2011Q3

REPORT INFORMATION
  Report Type: 
  Country: None (occurrence: None)
  Receive Date: 20110809
  Receipt Date: 20110801
  Transmission Date: 20111222
  Serious: Yes (Other)
  Sender: FDA-Public Use
  Company Number: US-ABBOTT-11P-163-0843221-00

PATIENT
  Sex: Female
  Weight: 70.824 kg

DRUGS (1)
  1. HUMIRA [Suspect]
     Indication: RHEUMATOID ARTHRITIS
     Dates: start: 20110301

REACTIONS (5)
  - NEPHROLITHIASIS [None]
  - WEIGHT DECREASED [None]
  - BACK PAIN [None]
  - TOOTH INFECTION [None]
  - GINGIVAL PAIN [None]
